FAERS Safety Report 13020680 (Version 2)
Quarter: 2016Q4

REPORT INFORMATION
  Report Type: Spontaneous
  Country: DO (occurrence: DO)
  Receive Date: 20161212
  Receipt Date: 20161227
  Transmission Date: 20170207
  Serious: Yes (Hospitalization)
  Sender: FDA-Public Use
  Company Number: DO-SA-2016SA223963

PATIENT
  Age: 12 Year
  Sex: Female

DRUGS (1)
  1. CEREZYME [Suspect]
     Active Substance: IMIGLUCERASE
     Indication: GAUCHER^S DISEASE
     Route: 041
     Dates: start: 2005

REACTIONS (1)
  - Multi-organ disorder [Not Recovered/Not Resolved]

NARRATIVE: CASE EVENT DATE: 2006
